FAERS Safety Report 7648874-5 (Version None)
Quarter: 2011Q3

REPORT INFORMATION
  Report Type: 
  Country: None (occurrence: None)
  Receive Date: 20110801
  Receipt Date: 20110722
  Transmission Date: 20111222
  Serious: Yes (Hospitalization)
  Sender: FDA-Public Use
  Company Number: PHHY2011GB66169

PATIENT
  Age: 35 Year
  Sex: Male

DRUGS (18)
  1. LITHIUM [Concomitant]
     Dosage: 800 MG, UNK
  2. HALOPERIDOL [Suspect]
     Dosage: 15 MG, QD
     Route: 048
     Dates: start: 20101129, end: 20101212
  3. HALOPERIDOL [Suspect]
     Dosage: 25 MG, QD
     Route: 048
     Dates: start: 20101101, end: 20101114
  4. HALOPERIDOL [Suspect]
     Dosage: 5 MG, UNK
  5. LITHIUM CARBONATE [Suspect]
     Indication: SCHIZOAFFECTIVE DISORDER
     Dosage: 800 MG, QD
     Dates: end: 20110109
  6. LITHIUM CARBONATE [Suspect]
     Dosage: 400 MG, QD
     Dates: start: 20110110, end: 20110117
  7. PROCYCLIDINE HYDROCHLORIDE 2MG TAB [Concomitant]
     Dosage: 5 MG, BID
     Dates: start: 20101129, end: 20101226
  8. HALOPERIDOL [Suspect]
     Indication: SCHIZOPHRENIA
     Dosage: 35 MG, QD
     Route: 048
     Dates: end: 20101017
  9. HALOPERIDOL [Suspect]
     Dosage: 20 MG, QD
     Route: 048
     Dates: start: 20101115, end: 20101128
  10. LITHIUM [Concomitant]
     Dosage: 800 MG, UNK
  11. HALOPERIDOL [Suspect]
     Dosage: 30 MG, QD
     Route: 048
     Dates: start: 20101018, end: 20101031
  12. HALOPERIDOL [Suspect]
     Dosage: 5 MG, QD
     Route: 048
     Dates: start: 20101220, end: 20101227
  13. QUETIAPINE [Concomitant]
     Indication: SCHIZOPHRENIA
     Dosage: 650 MG, UNK
  14. PROCYCLIDINE HYDROCHLORIDE 2MG TAB [Concomitant]
     Dosage: 5 MG, QD
     Dates: start: 20101227, end: 20110110
  15. QUETIAPINE [Concomitant]
     Dosage: 750 MG, UNK
  16. HALOPERIDOL [Suspect]
     Dosage: 10 MG, QD
     Route: 048
     Dates: start: 20101213, end: 20101219
  17. LITHIUM [Concomitant]
     Dosage: 400 MG, UNK
     Dates: end: 20110117
  18. PROCYCLIDINE HYDROCHLORIDE 2MG TAB [Concomitant]
     Dosage: 5 MG, TID
     Dates: end: 20101128

REACTIONS (11)
  - ABNORMAL BEHAVIOUR [None]
  - CONDITION AGGRAVATED [None]
  - PSYCHOTIC DISORDER [None]
  - MENTAL DISORDER [None]
  - THINKING ABNORMAL [None]
  - EXTRAPYRAMIDAL DISORDER [None]
  - HALLUCINATION, VISUAL [None]
  - DELUSION [None]
  - MOOD ALTERED [None]
  - GRANDIOSITY [None]
  - WITHDRAWAL SYNDROME [None]
